FAERS Safety Report 5993071-2 (Version None)
Quarter: 2008Q4

REPORT INFORMATION
  Report Type: 
  Country: None (occurrence: None)
  Receive Date: 20081212
  Receipt Date: 20081209
  Transmission Date: 20090506
  Serious: Yes (Death)
  Sender: FDA-Public Use
  Company Number: US-BRISTOL-MYERS SQUIBB COMPANY-14343537

PATIENT
  Age: 85 Year
  Sex: Female
  Weight: 122 kg

DRUGS (1)
  1. PRAVACHOL [Suspect]

REACTIONS (1)
  - COLON CANCER [None]
